FAERS Safety Report 11747964 (Version 2)
Quarter: 2016Q1

REPORT INFORMATION
  Report Type: Spontaneous
  Country: FR (occurrence: FR)
  Receive Date: 20151117
  Receipt Date: 20160128
  Transmission Date: 20160525
  Serious: Yes (Hospitalization, Congenital Anomaly, Other)
  Sender: FDA-Public Use
  Company Number: FR-GILEAD-2015-0182095

PATIENT
  Age: 0 Year
  Sex: Male

DRUGS (9)
  1. STRIBILD [Suspect]
     Active Substance: COBICISTAT\ELVITEGRAVIR\EMTRICITABINE\TENOFOVIR DISOPROXIL FUMARATE
     Indication: HIV INFECTION
     Dosage: UNK
     Route: 064
     Dates: start: 20150221, end: 20150309
  2. TRUVADA [Suspect]
     Active Substance: EMTRICITABINE\TENOFOVIR DISOPROXIL FUMARATE
     Indication: HIV INFECTION
     Dosage: UNK
     Route: 048
     Dates: start: 20150309, end: 20150402
  3. PREZISTA [Concomitant]
     Active Substance: DARUNAVIR ETHANOLATE
     Indication: HIV INFECTION
     Dosage: UNK
     Route: 065
     Dates: start: 20150309, end: 20150402
  4. BACTRIM [Concomitant]
     Active Substance: SULFAMETHOXAZOLE\TRIMETHOPRIM
     Indication: CD4 LYMPHOCYTES DECREASED
     Dosage: UNK
     Route: 064
     Dates: start: 20150729
  5. BACTRIM [Concomitant]
     Active Substance: SULFAMETHOXAZOLE\TRIMETHOPRIM
     Dosage: UNK
     Route: 064
     Dates: start: 20140131, end: 20150402
  6. TARDYFERON [Concomitant]
     Active Substance: FERROUS SULFATE\FOLIC ACID
     Indication: IRON DEFICIENCY
     Dosage: UNK
     Route: 064
     Dates: start: 20150729, end: 20150831
  7. ENGERIX-B [Concomitant]
     Active Substance: HEPATITIS B VIRUS SUBTYPE ADW2 HBSAG SURFACE PROTEIN ANTIGEN
     Indication: IMMUNISATION
     Dosage: UNK
     Route: 065
     Dates: start: 20150831, end: 20150831
  8. NORVIR [Concomitant]
     Active Substance: RITONAVIR
     Indication: HIV INFECTION
     Dosage: UNK
     Route: 065
     Dates: start: 20150309, end: 20150402
  9. STRIBILD [Suspect]
     Active Substance: COBICISTAT\ELVITEGRAVIR\EMTRICITABINE\TENOFOVIR DISOPROXIL FUMARATE
     Dosage: UNK
     Route: 064
     Dates: start: 20150729

REACTIONS (8)
  - Anaemia [Unknown]
  - Neonatal respiratory distress syndrome [Unknown]
  - Pertussis [Unknown]
  - Premature baby [Recovered/Resolved]
  - Respiratory syncytial virus bronchiolitis [Unknown]
  - Microcytic anaemia [Unknown]
  - Ultrasound skull abnormal [Unknown]
  - Dyspraxia [Unknown]

NARRATIVE: CASE EVENT DATE: 2015
